FAERS Safety Report 25260224 (Version 1)
Quarter: 2025Q2

REPORT INFORMATION
  Report Type: Spontaneous
  Country: US (occurrence: None)
  Receive Date: 20250501
  Receipt Date: 20250501
  Transmission Date: 20250717
  Serious: Yes (Hospitalization)
  Sender: FDA-CTU
  Company Number: None

PATIENT
  Age: 70 Year
  Sex: Male
  Weight: 68 kg

DRUGS (1)
  1. RIVAROXABAN [Suspect]
     Active Substance: RIVAROXABAN
     Indication: Atrial fibrillation
     Dosage: FREQUENCY : DAILY;?
     Route: 048
     Dates: start: 20241023, end: 20250128

REACTIONS (8)
  - Dizziness [None]
  - Fall [None]
  - Subarachnoid haemorrhage [None]
  - Subdural haematoma [None]
  - Head injury [None]
  - Agitation [None]
  - Delirium [None]
  - Therapy interrupted [None]

NARRATIVE: CASE EVENT DATE: 20250128
